FAERS Safety Report 11651154 (Version 2)
Quarter: 2015Q4

REPORT INFORMATION
  Report Type: Spontaneous
  Country: US (occurrence: US)
  Receive Date: 20151021
  Receipt Date: 20151022
  Transmission Date: 20160304
  Serious: No
  Sender: FDA-Public Use
  Company Number: US-PURDUE-USA-2015-0124037

PATIENT
  Age: 32 Year
  Sex: Male

DRUGS (1)
  1. OXYCODONE HCL IR CAPSULES [Suspect]
     Active Substance: OXYCODONE HYDROCHLORIDE
     Indication: PAIN
     Dosage: UNK MG, UNK
     Route: 048
     Dates: start: 2011, end: 201504

REACTIONS (6)
  - Drug tolerance [Unknown]
  - Constipation [Unknown]
  - Unevaluable event [Unknown]
  - Feeling abnormal [Unknown]
  - Intentional product use issue [Unknown]
  - Nausea [Unknown]
